FAERS Safety Report 9906604 (Version 2)
Quarter: 2014Q1

REPORT INFORMATION
  Report Type: Spontaneous
  Country: CZ (occurrence: CZ)
  Receive Date: 20140218
  Receipt Date: 20140227
  Transmission Date: 20141002
  Serious: Yes (Other)
  Sender: FDA-Public Use
  Company Number: CZ-ACTAVIS-2014-02434

PATIENT
  Age: 35 Year
  Sex: Female

DRUGS (4)
  1. TRAMADOL (UNKNOWN) [Suspect]
     Indication: TOOTHACHE
     Dosage: UP TO 1500-2250 MG DAILY
     Route: 048
  2. TRAMADOL (UNKNOWN) [Suspect]
     Indication: HEADACHE
  3. TRAMADOL (UNKNOWN) [Suspect]
     Indication: BACK PAIN
  4. TRAMADOL (UNKNOWN) [Suspect]
     Indication: INTENTIONAL DRUG MISUSE

REACTIONS (6)
  - Hallucination, visual [Unknown]
  - Anxiety [Unknown]
  - Withdrawal syndrome [Unknown]
  - Drug dependence [Unknown]
  - Intentional drug misuse [Unknown]
  - Overdose [Unknown]
